FAERS Safety Report 24546859 (Version 1)
Quarter: 2024Q4

REPORT INFORMATION
  Report Type: Spontaneous
  Country: GR (occurrence: GR)
  Receive Date: 20241024
  Receipt Date: 20241024
  Transmission Date: 20250114
  Serious: Yes (Hospitalization)
  Sender: NOVO NORDISK
  Company Number: GR-NOVOPROD-1301737

PATIENT
  Age: 73 Year
  Sex: Male

DRUGS (7)
  1. NOVOSEVEN [Suspect]
     Active Substance: COAGULATION FACTOR VIIA RECOMBINANT HUMAN
     Dosage: 36 MG, QD
  2. NOVOSEVEN [Suspect]
     Active Substance: COAGULATION FACTOR VIIA RECOMBINANT HUMAN
     Indication: Acquired haemophilia
     Dosage: 18 MG, QD
  3. FRESH FROZEN PLASMA [Concomitant]
     Active Substance: HUMAN PLASMA
     Indication: Acquired haemophilia
     Dosage: UNK
  4. TRANEXAMIC ACID [Concomitant]
     Active Substance: TRANEXAMIC ACID
     Indication: Acquired haemophilia
     Dosage: 1500 MG, QD
  5. METHYLPREDNISOLONE [Concomitant]
     Active Substance: METHYLPREDNISOLONE
     Indication: Acquired haemophilia
     Dosage: 1 MG/KG/DAY
  6. CYCLOPHOSPHAMIDE [Concomitant]
     Active Substance: CYCLOPHOSPHAMIDE
     Indication: Acquired haemophilia
     Dosage: 100 MG, QD
  7. ASPIRIN [Concomitant]
     Active Substance: ASPIRIN
     Indication: Transient ischaemic attack
     Dosage: UNK

REACTIONS (2)
  - Haemorrhagic diathesis [Recovered/Resolved]
  - Drug ineffective [Recovered/Resolved]
